FAERS Safety Report 5932889-9 (Version None)
Quarter: 2008Q4

REPORT INFORMATION
  Report Type: 
  Country: None (occurrence: None)
  Receive Date: 20081027
  Receipt Date: 20081027
  Transmission Date: 20090506
  Serious: Yes (Other)
  Sender: FDA-Public Use
  Company Number: None

PATIENT
  Sex: Male
  Weight: 79.3795 kg

DRUGS (1)
  1. LORAZEPAM [Suspect]
     Indication: ANXIETY
     Dosage: 1 TAB BID/PRN
     Dates: start: 20070101, end: 20081025

REACTIONS (2)
  - DRUG INEFFECTIVE [None]
  - RESPIRATORY PARALYSIS [None]
